FAERS Safety Report 17481197 (Version 1)
Quarter: 2020Q1

REPORT INFORMATION
  Report Type: Report from Study
  Country: US (occurrence: US)
  Receive Date: 20200302
  Receipt Date: 20200302
  Transmission Date: 20200409
  Serious: Yes (Other)
  Sender: FDA-Public Use
  Company Number: US-ASTELLAS-2019US050821

PATIENT
  Sex: Male

DRUGS (1)
  1. ENZALUTAMIDE [Suspect]
     Active Substance: ENZALUTAMIDE
     Indication: PRODUCT USED FOR UNKNOWN INDICATION
     Dosage: 160 MG, ONCE DAILY (4 CAPSULES A DAY)
     Route: 065
     Dates: start: 20190201, end: 201911

REACTIONS (4)
  - Somnolence [Unknown]
  - Malignant neoplasm progression [Unknown]
  - Depressed level of consciousness [Unknown]
  - Drug ineffective [Unknown]
